FAERS Safety Report 10354743 (Version 3)
Quarter: 2014Q3

REPORT INFORMATION
  Report Type: Spontaneous
  Country: JP (occurrence: None)
  Receive Date: 20140729
  Receipt Date: 20140903
  Transmission Date: 20150326
  Serious: Yes (Other)
  Sender: FDA-Public Use
  Company Number: JP-016521

PATIENT
  Age: 65 Year
  Sex: Male
  Weight: 73 kg

DRUGS (8)
  1. CASODEX [Suspect]
     Active Substance: BICALUTAMIDE
     Route: 048
     Dates: start: 20130530
  2. AMLODIPINE [Concomitant]
     Active Substance: AMLODIPINE BESYLATE
  3. MOSAPRIDE [Concomitant]
     Active Substance: MOSAPRIDE
  4. EVIPROSTAT [Concomitant]
     Active Substance: CHIMAPHILA UMBELLATA\MANGANESE CHLORIDE\POPULUS TREMULOIDES\SODIUM TAUROCHOLATE
  5. DEGARELIX [Suspect]
     Active Substance: DEGARELIX
     Indication: PROSTATE CANCER
     Route: 058
     Dates: start: 20130530, end: 20130530
  6. URSO [Concomitant]
     Active Substance: URSODIOL
  7. RABEPRAZOLE NA [Concomitant]
  8. LENDORMIN [Concomitant]
     Active Substance: BROTIZOLAM

REACTIONS (15)
  - Injection site induration [None]
  - Musculoskeletal stiffness [None]
  - Arthralgia [None]
  - Trigger finger [None]
  - Pain in extremity [None]
  - Intervertebral disc protrusion [None]
  - Peripheral coldness [None]
  - Hypoaesthesia [None]
  - Alanine aminotransferase increased [None]
  - Blood lactate dehydrogenase increased [None]
  - Hepatic function abnormal [None]
  - Muscular weakness [None]
  - Blood alkaline phosphatase increased [None]
  - Gamma-glutamyltransferase increased [None]
  - Spinal osteoarthritis [None]

NARRATIVE: CASE EVENT DATE: 20130602
